FAERS Safety Report 10619169 (Version 2)
Quarter: 2014Q4

REPORT INFORMATION
  Report Type: Spontaneous
  Country: US (occurrence: None)
  Receive Date: 20141126
  Receipt Date: 20141128
  Transmission Date: 20150529
  Serious: Yes (Other)
  Sender: FDA-Public Use
  Company Number: KAD201411-001512

PATIENT
  Sex: Female

DRUGS (2)
  1. RIBAVIRIN. [Suspect]
     Active Substance: RIBAVIRIN
     Indication: HEPATITIS C
     Dosage: THREE SHOTS ONCE DAILY.
  2. INTERFERON NOS [Concomitant]
     Active Substance: INTERFERON

REACTIONS (2)
  - Pain [None]
  - Internal haemorrhage [None]
